FAERS Safety Report 4783997-X (Version None)
Quarter: 2005Q3

REPORT INFORMATION
  Report Type: 
  Country: None (occurrence: None)
  Receive Date: 20050927
  Receipt Date: 20050811
  Transmission Date: 20060218
  Serious: No
  Sender: FDA-Public Use
  Company Number: USA0508105322

PATIENT
  Age: 11 Year
  Sex: Female
  Weight: 33 kg

DRUGS (3)
  1. STRATTERA [Suspect]
     Indication: DISTURBANCE IN ATTENTION
     Dosage: 50 MG DAY
     Dates: start: 20030101
  2. BENADRYL [Concomitant]
  3. ZYRTEC [Concomitant]

REACTIONS (4)
  - ABDOMINAL PAIN UPPER [None]
  - DRUG INEFFECTIVE [None]
  - HEADACHE [None]
  - MEMORY IMPAIRMENT [None]
